FAERS Safety Report 7751578-1 (Version None)
Quarter: 2011Q3

REPORT INFORMATION
  Report Type: 
  Country: None (occurrence: None)
  Receive Date: 20110914
  Receipt Date: 20110909
  Transmission Date: 20111222
  Serious: Yes (Other)
  Sender: FDA-Public Use
  Company Number: PHHY2011IN80526

PATIENT
  Age: 76 Year
  Sex: Female

DRUGS (1)
  1. ZOLEDRONOC ACID [Suspect]
     Dosage: 5MG/100ML
     Route: 042

REACTIONS (2)
  - FEMUR FRACTURE [None]
  - CERVICAL VERTEBRAL FRACTURE [None]
